FAERS Safety Report 9788634 (Version 2)
Quarter: 2014Q1

REPORT INFORMATION
  Report Type: Report from Study
  Country: AU (occurrence: AU)
  Receive Date: 20131230
  Receipt Date: 20140221
  Transmission Date: 20141002
  Serious: Yes (Death)
  Sender: FDA-Public Use
  Company Number: PHHY2013AU153216

PATIENT
  Sex: Male

DRUGS (16)
  1. ACLASTA [Suspect]
     Dosage: 5 MG YEARLY
     Route: 042
     Dates: start: 20130126
  2. CRESTOR [Concomitant]
     Dosage: 1 DF, QD
  3. EPILIM [Concomitant]
     Dosage: 1 DF, BID
  4. FRUSEMIDE [Concomitant]
     Dosage: 2 MANE
  5. GLICLAZIDE [Concomitant]
     Dosage: 1 DF, QD
  6. METFORMIN [Concomitant]
     Dosage: 1 DF, BID
  7. NEBIVOLOL [Concomitant]
     Dosage: HALF BD
  8. OXYBUTYNIN [Concomitant]
     Dosage: 1 DF, QD
  9. PANADOL [Concomitant]
     Dosage: 2 DF, TID
  10. PLAVIX [Concomitant]
     Dosage: 1 DF, QD
  11. PREDNISONE [Concomitant]
     Dosage: 1 DF, QD
  12. RAMIPRIL [Concomitant]
     Dosage: 1 DF, QD
  13. SEROQUEL [Concomitant]
     Dosage: 1 NOCTE
  14. SYMBICORT [Concomitant]
     Dosage: 2 PUFFS, BID
  15. TARGIN [Concomitant]
     Dosage: 1 DF, BID
  16. TEMAZE [Concomitant]
     Dosage: 1 NOCTE

REACTIONS (3)
  - Respiratory failure [Fatal]
  - Dyspnoea [Fatal]
  - Infective exacerbation of chronic obstructive airways disease [Fatal]
